FAERS Safety Report 22369059 (Version 1)
Quarter: 2023Q2

REPORT INFORMATION
  Report Type: Spontaneous
  Country: CA (occurrence: CA)
  Receive Date: 20230525
  Receipt Date: 20230525
  Transmission Date: 20230721
  Serious: Yes (Death)
  Sender: FDA-Public Use
  Company Number: CA-HLS-202301117

PATIENT
  Sex: Female
  Weight: 42 kg

DRUGS (2)
  1. CLOZAPINE [Suspect]
     Active Substance: CLOZAPINE
     Indication: Schizophrenia
     Dosage: 1 EVERY 2 DAYS?AMOUNT: 100 MILLIGRAM?TABLETS DOSAGE FORM
     Route: 048
  2. OLANZAPINE [Suspect]
     Active Substance: OLANZAPINE
     Indication: Schizophrenia
     Dosage: 3 EVERY 1 DAYS?AMOUNT: 10 MILLIGRAM?NOT SPECIFIED DOSAGE FORM
     Route: 048

REACTIONS (1)
  - Death [Fatal]
